FAERS Safety Report 18627488 (Version 2)
Quarter: 2020Q4

REPORT INFORMATION
  Report Type: Report from Study
  Country: US (occurrence: US)
  Receive Date: 20201217
  Receipt Date: 20201225
  Transmission Date: 20210114
  Serious: Yes (Other)
  Sender: FDA-Public Use
  Company Number: NVSC2020US327824

PATIENT
  Sex: Male

DRUGS (2)
  1. COENZYME Q10 [Suspect]
     Active Substance: DIETARY SUPPLEMENT\UBIDECARENONE
     Indication: PRODUCT USED FOR UNKNOWN INDICATION
     Dosage: UNK
     Route: 065
  2. ENTRESTO [Suspect]
     Active Substance: SACUBITRIL\VALSARTAN
     Indication: CARDIAC DISORDER
     Dosage: 50 MG, BID
     Route: 048

REACTIONS (6)
  - Cough [Unknown]
  - Fluid retention [Unknown]
  - Product use in unapproved indication [Unknown]
  - Pulmonary oedema [Not Recovered/Not Resolved]
  - Agitation [Unknown]
  - Oxygen saturation decreased [Unknown]
